FAERS Safety Report 11107069 (Version 1)
Quarter: 2015Q2

REPORT INFORMATION
  Report Type: Spontaneous
  Country: BG (occurrence: BG)
  Receive Date: 20150512
  Receipt Date: 20150512
  Transmission Date: 20150821
  Serious: Yes (Death, Life-Threatening, Hospitalization, Disabling)
  Sender: FDA-Public Use
  Company Number: BG-WATSON-2015-09316

PATIENT
  Age: 70 Year
  Sex: Female

DRUGS (1)
  1. METFORMIN (UNKNOWN) [Suspect]
     Active Substance: METFORMIN HYDROCHLORIDE
     Indication: PRODUCT USED FOR UNKNOWN INDICATION
     Dosage: UNK, UNKNOWN
     Route: 065

REACTIONS (7)
  - Acidosis [Fatal]
  - Drug level increased [Fatal]
  - Abnormal behaviour [Unknown]
  - Anger [Unknown]
  - Blood lactic acid increased [Fatal]
  - Haemodynamic instability [Fatal]
  - Lactic acidosis [Fatal]
